FAERS Safety Report 8859344 (Version 1)
Quarter: 2012Q4

REPORT INFORMATION
  Report Type: 
  Country: US (occurrence: US)
  Receive Date: 20121024
  Receipt Date: 20121024
  Transmission Date: 20130627
  Serious: No
  Sender: FDA-Public Use
  Company Number: US-ASTRAZENECA-2011SE16932

PATIENT
  Age: 26 Year
  Sex: Male

DRUGS (1)
  1. TOPROL XL [Suspect]
     Dosage: 2 tablets of 100mg in the morning and 100mg at night.
     Route: 048

REACTIONS (3)
  - Diarrhoea [Recovered/Resolved]
  - Nausea [Recovered/Resolved]
  - Off label use [Unknown]
